FAERS Safety Report 5706619-X (Version None)
Quarter: 2008Q2

REPORT INFORMATION
  Report Type: 
  Country: None (occurrence: None)
  Receive Date: 20080414
  Receipt Date: 20000815
  Transmission Date: 20081010
  Serious: Yes (Death, Life-Threatening)
  Sender: FDA-Public Use
  Company Number: 2001IC000057

PATIENT
  Age: 44 Year
  Sex: Male

DRUGS (5)
  1. ANCOTIL (FLUCYTOSINE) [Suspect]
     Indication: BRONCHOPULMONARY ASPERGILLOSIS
     Dosage: 6.4 GM; IV
     Route: 042
     Dates: start: 20000707, end: 20000707
  2. ANCOTIL (FLUCYTOSINE) [Suspect]
     Indication: FUNGAL INFECTION
     Dosage: 6.4 GM; IV
     Route: 042
     Dates: start: 20000707, end: 20000707
  3. AMPHOTERICIN B [Concomitant]
  4. FK 463 [Concomitant]
  5. FK 465 [Concomitant]

REACTIONS (5)
  - CONDITION AGGRAVATED [None]
  - DISEASE PROGRESSION [None]
  - PANCYTOPENIA [None]
  - PULMONARY HAEMORRHAGE [None]
  - RENAL FAILURE [None]
